FAERS Safety Report 9146139 (Version 1)
Quarter: 2013Q1

REPORT INFORMATION
  Report Type: Spontaneous
  Country: CO (occurrence: CO)
  Receive Date: 20130307
  Receipt Date: 20130307
  Transmission Date: 20140127
  Serious: Yes (Hospitalization, Other)
  Sender: FDA-Public Use
  Company Number: CO-PFIZER INC-2013076517

PATIENT
  Age: 69 Year
  Sex: Female

DRUGS (8)
  1. ALDACTONE [Suspect]
     Indication: ASCITES
     Dosage: 25 MG, 1X/DAY
     Dates: end: 2010
  2. ALDACTONE [Suspect]
     Dosage: 100 MG, 1X/DAY
     Route: 048
     Dates: start: 2010
  3. OMEPRAZOLE [Concomitant]
     Indication: HEPATIC CIRRHOSIS
     Dosage: 20 MG, 1X/DAY
     Route: 048
     Dates: start: 2010
  4. OMEPRAZOLE [Concomitant]
     Indication: OESOPHAGEAL VARICES HAEMORRHAGE
  5. FUROSEMIDE [Concomitant]
     Indication: OESOPHAGEAL VARICES HAEMORRHAGE
     Dosage: 40 MG, 1X/DAY
     Route: 048
     Dates: start: 2010
  6. FUROSEMIDE [Concomitant]
     Indication: HEPATIC CIRRHOSIS
  7. LACTULOSE [Concomitant]
     Indication: HEPATIC CIRRHOSIS
     Dosage: UNK
     Route: 048
     Dates: start: 2010
  8. LACTULOSE [Concomitant]
     Indication: OESOPHAGEAL VARICES HAEMORRHAGE

REACTIONS (3)
  - Hepatic cirrhosis [Not Recovered/Not Resolved]
  - Oesophageal varices haemorrhage [Not Recovered/Not Resolved]
  - Speech disorder [Unknown]
